FAERS Safety Report 4822272-1 (Version None)
Quarter: 2005Q4

REPORT INFORMATION
  Report Type: 
  Country: None (occurrence: None)
  Receive Date: 20051107
  Receipt Date: 20051102
  Transmission Date: 20060501
  Serious: Yes (Hospitalization)
  Sender: FDA-Public Use
  Company Number: NZ-MERCK-0511NZL00010

PATIENT
  Age: 57 Year
  Sex: Male

DRUGS (12)
  1. ZOCOR [Suspect]
     Indication: BLOOD CHOLESTEROL INCREASED
     Route: 048
     Dates: start: 20050101
  2. GLIPIZIDE [Concomitant]
     Indication: DIABETES MELLITUS
     Route: 048
  3. METFORMIN [Concomitant]
     Route: 048
  4. BENDROFLUMETHIAZIDE [Concomitant]
     Route: 048
  5. VITAMINS (UNSPECIFIED) [Concomitant]
     Route: 065
  6. METOPROLOL TARTRATE [Concomitant]
     Route: 065
  7. OXYBUTYNIN [Concomitant]
     Route: 065
  8. OMEPRAZOLE [Concomitant]
     Route: 065
  9. ACETAMINOPHEN [Concomitant]
     Route: 065
  10. CETIRIZINE HYDROCHLORIDE [Concomitant]
     Route: 065
  11. LACTULOSE [Concomitant]
     Indication: CONSTIPATION
     Route: 048
  12. [THERAPY UNSPECIFIED] [Concomitant]
     Indication: CONSTIPATION
     Route: 065

REACTIONS (6)
  - ABDOMINAL DISTENSION [None]
  - ASTHENIA [None]
  - CONSTIPATION [None]
  - FEELING HOT [None]
  - GASTROENTERITIS [None]
  - VASODILATATION [None]
